FAERS Safety Report 6664621-8 (Version None)
Quarter: 2010Q1

REPORT INFORMATION
  Report Type: 
  Country: None (occurrence: None)
  Receive Date: 20100330
  Receipt Date: 20091123
  Transmission Date: 20100710
  Serious: Yes (Other)
  Sender: FDA-Public Use
  Company Number: 6055814

PATIENT
  Age: 74 Year
  Sex: Female

DRUGS (8)
  1. LEVOTHYROXINE SODIUM [Suspect]
     Indication: HYPOTHYROIDISM
     Dosage: 75 MCG
     Route: 048
     Dates: start: 20010101
  2. AROMASINE (TABLET) (EXEMESTANE) [Suspect]
     Indication: BREAST CANCER
     Route: 048
  3. LOPRESSOR (200 MG, TABLET) (METOPROLOL TARTRATE) [Suspect]
     Indication: HYPERTENSION
     Dosage: 1 DOSAGE FORMS
     Route: 048
  4. ALDACTAZINE (TABLET) (ALDACTAZINE) [Suspect]
     Indication: DRUG USE FOR UNKNOWN INDICATION
     Dosage: 0.5 DOSAGE FORMS
     Route: 048
  5. MOPRAL (20 MG, TABLET) (OMEPRAZOLE) [Suspect]
     Indication: HIATUS HERNIA
     Dosage: 1 DOSAGE FORMS
     Route: 048
  6. EZETROL (TABLET) (EZETIMIBE) [Suspect]
     Indication: HYPERCHOLESTEROLAEMIA
     Dosage: 1 DOSAGE FORMS
     Route: 048
  7. PREVISCAN (20 MG, TABLET) (FLUINDIONE) [Suspect]
     Indication: PULMONARY EMBOLISM
     Dosage: 1 DOSAGE FORMS 0.5 DOSAGE FORMS 0.25 DOSAGE FORMS
     Route: 048
     Dates: start: 20091001
  8. INNOHEP (INJECTION) (HEPARIN-FRACTION, SODIUM SALT) [Suspect]
     Indication: PULMONARY EMBOLISM
     Route: 058
     Dates: start: 20091022

REACTIONS (8)
  - BLOOD URINE PRESENT [None]
  - DRUG INTERACTION [None]
  - FATIGUE [None]
  - MYALGIA [None]
  - OEDEMA PERIPHERAL [None]
  - PULMONARY EMBOLISM [None]
  - SOMNOLENCE [None]
  - VERTIGO [None]
